FAERS Safety Report 4901265-X (Version None)
Quarter: 2005Q4

REPORT INFORMATION
  Report Type: 
  Country: None (occurrence: None)
  Receive Date: 20051209
  Receipt Date: 20051101
  Transmission Date: 20060501
  Serious: No
  Sender: FDA-Public Use
  Company Number: 2005-51884D

PATIENT
  Sex: Female

DRUGS (1)
  1. ENDOSOL EXTRA [Suspect]
     Indication: EYE IRRIGATION
     Dosage: 500 ML, ONCE, INTRAOCULAR 031
     Route: 031
     Dates: start: 20050922

REACTIONS (3)
  - FIBRIN INCREASED [None]
  - INFLAMMATION [None]
  - POST PROCEDURAL COMPLICATION [None]
